FAERS Safety Report 19938893 (Version 27)
Quarter: 2025Q1

REPORT INFORMATION
  Report Type: Spontaneous
  Country: CA (occurrence: CA)
  Receive Date: 20211011
  Receipt Date: 20250320
  Transmission Date: 20250408
  Serious: Yes (Death, Hospitalization, Disabling, Other)
  Sender: MYLAN
  Company Number: CA-ABBOTT-11P-028-0710272-00

PATIENT
  Age: 54 Year
  Sex: Male

DRUGS (173)
  1. VALPROIC ACID [Interacting]
     Active Substance: VALPROIC ACID
     Indication: Bipolar disorder
  2. VALPROIC ACID [Interacting]
     Active Substance: VALPROIC ACID
  3. VALPROIC ACID [Interacting]
     Active Substance: VALPROIC ACID
     Dosage: 400 MILLIGRAM, BID
  4. VALPROIC ACID [Interacting]
     Active Substance: VALPROIC ACID
     Indication: Bipolar disorder
  5. VALPROIC ACID [Interacting]
     Active Substance: VALPROIC ACID
  6. SERTRALINE [Interacting]
     Active Substance: SERTRALINE HYDROCHLORIDE
     Indication: Bipolar disorder
  7. SERTRALINE [Interacting]
     Active Substance: SERTRALINE HYDROCHLORIDE
     Indication: HIV infection
  8. SERTRALINE [Interacting]
     Active Substance: SERTRALINE HYDROCHLORIDE
     Dosage: 400 MILLIGRAM, BID (2 EVERY 1 DAY)
  9. SERTRALINE [Interacting]
     Active Substance: SERTRALINE HYDROCHLORIDE
  10. SERTRALINE [Interacting]
     Active Substance: SERTRALINE HYDROCHLORIDE
  11. SERTRALINE [Interacting]
     Active Substance: SERTRALINE HYDROCHLORIDE
     Indication: Bipolar disorder
  12. SERTRALINE [Interacting]
     Active Substance: SERTRALINE HYDROCHLORIDE
  13. SERTRALINE [Interacting]
     Active Substance: SERTRALINE HYDROCHLORIDE
     Indication: Bipolar disorder
     Dosage: 400 MILLIGRAM, BID (2 EVERY 1 DAY)
  14. SERTRALINE [Interacting]
     Active Substance: SERTRALINE HYDROCHLORIDE
  15. SERTRALINE [Interacting]
     Active Substance: SERTRALINE HYDROCHLORIDE
  16. SERTRALINE [Interacting]
     Active Substance: SERTRALINE HYDROCHLORIDE
  17. SERTRALINE [Interacting]
     Active Substance: SERTRALINE HYDROCHLORIDE
     Indication: Bipolar disorder
  18. SERTRALINE [Interacting]
     Active Substance: SERTRALINE HYDROCHLORIDE
     Dosage: 400 MILLIGRAM, BID
  19. CELECOXIB [Interacting]
     Active Substance: CELECOXIB
     Indication: Psychotic disorder
  20. QUETIAPINE [Interacting]
     Active Substance: QUETIAPINE
     Indication: HIV infection
  21. QUETIAPINE [Interacting]
     Active Substance: QUETIAPINE
     Indication: Bipolar disorder
  22. QUETIAPINE [Interacting]
     Active Substance: QUETIAPINE
     Indication: Bipolar disorder
  23. QUETIAPINE [Interacting]
     Active Substance: QUETIAPINE
     Indication: HIV infection
     Dosage: 400 MILLIGRAM, BIWEEKLY
  24. QUETIAPINE [Interacting]
     Active Substance: QUETIAPINE
  25. QUETIAPINE [Interacting]
     Active Substance: QUETIAPINE
     Dosage: 400 MILLIGRAM, QID
  26. QUETIAPINE [Interacting]
     Active Substance: QUETIAPINE
     Dosage: 2 DOSAGE FORM, QD
  27. QUETIAPINE [Interacting]
     Active Substance: QUETIAPINE
     Indication: HIV infection
  28. QUETIAPINE [Interacting]
     Active Substance: QUETIAPINE
     Indication: Bipolar disorder
  29. QUETIAPINE [Interacting]
     Active Substance: QUETIAPINE
     Indication: Bipolar disorder
     Dosage: 400 MILLIGRAM, BIWEEKLY  114.2857 MG
  30. QUETIAPINE [Interacting]
     Active Substance: QUETIAPINE
     Indication: HIV infection
     Dosage: 2 DF, QD
  31. QUETIAPINE [Interacting]
     Active Substance: QUETIAPINE
  32. QUETIAPINE [Interacting]
     Active Substance: QUETIAPINE
     Indication: Bipolar disorder
  33. QUETIAPINE [Interacting]
     Active Substance: QUETIAPINE
     Indication: HIV infection
  34. QUETIAPINE [Interacting]
     Active Substance: QUETIAPINE
     Dosage: 400 MILLIGRAM, BIWEEKLY (1 EVERY 2 WEEKS)
  35. QUETIAPINE [Interacting]
     Active Substance: QUETIAPINE
     Dosage: 2 DOSAGE FORM, QD (1 EVERY 1 DAYS)
  36. QUETIAPINE [Interacting]
     Active Substance: QUETIAPINE
     Dosage: 400 MILLIGRAM, QID (4 EVERY 1 DAYS)
  37. QUETIAPINE [Interacting]
     Active Substance: QUETIAPINE
     Dosage: 400 MILLIGRAM, BIWEEKLY (QOW)
  38. QUETIAPINE [Interacting]
     Active Substance: QUETIAPINE
     Dosage: 800 MILLIGRAM, BIWEEKLY (QOW, TWICE A WEEK))
  39. ATAZANAVIR [Interacting]
     Active Substance: ATAZANAVIR
     Indication: HIV infection
  40. ATAZANAVIR [Interacting]
     Active Substance: ATAZANAVIR
  41. ATAZANAVIR [Interacting]
     Active Substance: ATAZANAVIR
  42. BUPROPION [Interacting]
     Active Substance: BUPROPION
     Indication: Bipolar disorder
  43. BUPROPION [Interacting]
     Active Substance: BUPROPION
  44. EFAVIRENZ [Interacting]
     Active Substance: EFAVIRENZ
     Indication: HIV infection
  45. EFAVIRENZ [Interacting]
     Active Substance: EFAVIRENZ
     Dosage: 400 MILLIGRAM, BID
  46. EFAVIRENZ [Interacting]
     Active Substance: EFAVIRENZ
     Dosage: 800 MILLIGRAM, QD
  47. EFAVIRENZ [Interacting]
     Active Substance: EFAVIRENZ
     Dosage: 1 DOSAGE FORM, BID (2 EVERY 1 DAYS)
  48. EFAVIRENZ [Interacting]
     Active Substance: EFAVIRENZ
  49. EFAVIRENZ [Interacting]
     Active Substance: EFAVIRENZ
  50. EFAVIRENZ [Interacting]
     Active Substance: EFAVIRENZ
     Dosage: 400 MILLIGRAM, BID (2 EVERY 1 DAY)
  51. EFAVIRENZ [Interacting]
     Active Substance: EFAVIRENZ
     Dosage: 400 MILLIGRAM, QD (1 EVERY 1 DAYS)
  52. CLONAZEPAM [Interacting]
     Active Substance: CLONAZEPAM
     Indication: Bipolar disorder
  53. CLONAZEPAM [Interacting]
     Active Substance: CLONAZEPAM
  54. ZOPICLONE [Interacting]
     Active Substance: ZOPICLONE
     Indication: Bipolar disorder
  55. ZOPICLONE [Interacting]
     Active Substance: ZOPICLONE
  56. ZOPICLONE [Interacting]
     Active Substance: ZOPICLONE
  57. RALTEGRAVIR POTASSIUM [Interacting]
     Active Substance: RALTEGRAVIR POTASSIUM
     Indication: HIV infection
     Dosage: 800 MILLIGRAM BID
  58. RALTEGRAVIR POTASSIUM [Interacting]
     Active Substance: RALTEGRAVIR POTASSIUM
     Dosage: 1 DOSAGE FORM, BID (2 EVERY 1 DAYS)
  59. RALTEGRAVIR POTASSIUM [Interacting]
     Active Substance: RALTEGRAVIR POTASSIUM
  60. RALTEGRAVIR POTASSIUM [Interacting]
     Active Substance: RALTEGRAVIR POTASSIUM
  61. RALTEGRAVIR POTASSIUM [Interacting]
     Active Substance: RALTEGRAVIR POTASSIUM
     Dosage: 2 MILLIGRAM, QD
  62. RALTEGRAVIR POTASSIUM [Interacting]
     Active Substance: RALTEGRAVIR POTASSIUM
     Dosage: 400 MILLILITER, QD
  63. RALTEGRAVIR POTASSIUM [Interacting]
     Active Substance: RALTEGRAVIR POTASSIUM
     Dosage: 400 MILLIGRAM, BID (2 EVERY 1 DAY)
  64. RALTEGRAVIR POTASSIUM [Interacting]
     Active Substance: RALTEGRAVIR POTASSIUM
  65. RALTEGRAVIR POTASSIUM [Interacting]
     Active Substance: RALTEGRAVIR POTASSIUM
     Dosage: 2 DOSAGE FORM, QD (1 EVERY 1 DAYS)
  66. RALTEGRAVIR POTASSIUM [Interacting]
     Active Substance: RALTEGRAVIR POTASSIUM
     Dosage: 400 MILLIGRAM, QD
  67. RALTEGRAVIR POTASSIUM [Interacting]
     Active Substance: RALTEGRAVIR POTASSIUM
     Dosage: 800 MILLIGRAM, QD
  68. RALTEGRAVIR POTASSIUM [Interacting]
     Active Substance: RALTEGRAVIR POTASSIUM
     Dosage: 400 MILLIGRAM, QID
  69. RALTEGRAVIR POTASSIUM [Interacting]
     Active Substance: RALTEGRAVIR POTASSIUM
  70. RALTEGRAVIR POTASSIUM [Interacting]
     Active Substance: RALTEGRAVIR POTASSIUM
  71. KALETRA [Interacting]
     Active Substance: LOPINAVIR\RITONAVIR
     Indication: HIV infection
  72. KALETRA [Interacting]
     Active Substance: LOPINAVIR\RITONAVIR
     Indication: Bipolar disorder
  73. LOPINAVIR\RITONAVIR [Interacting]
     Active Substance: LOPINAVIR\RITONAVIR
     Indication: HIV infection
  74. LOPINAVIR\RITONAVIR [Interacting]
     Active Substance: LOPINAVIR\RITONAVIR
     Indication: Bipolar disorder
  75. LOPINAVIR\RITONAVIR [Interacting]
     Active Substance: LOPINAVIR\RITONAVIR
     Dosage: 400 MILLIGRAM, BID
  76. LAMIVUDINE [Interacting]
     Active Substance: LAMIVUDINE
     Indication: HIV infection
  77. LAMIVUDINE [Interacting]
     Active Substance: LAMIVUDINE
  78. BUPROPION HYDROCHLORIDE [Interacting]
     Active Substance: BUPROPION HYDROCHLORIDE
     Indication: Bipolar disorder
  79. BUPROPION HYDROCHLORIDE [Interacting]
     Active Substance: BUPROPION HYDROCHLORIDE
  80. LAMIVUDINE [Interacting]
     Active Substance: LAMIVUDINE
     Indication: HIV infection
  81. LAMIVUDINE [Interacting]
     Active Substance: LAMIVUDINE
     Indication: Bipolar disorder
  82. LAMIVUDINE [Interacting]
     Active Substance: LAMIVUDINE
  83. RALTEGRAVIR [Interacting]
     Active Substance: RALTEGRAVIR
     Indication: HIV infection
     Dosage: 400 MILLIGRAM, BID
  84. RALTEGRAVIR [Interacting]
     Active Substance: RALTEGRAVIR
     Dosage: 800 MILLIGRAM, QD
  85. RALTEGRAVIR [Interacting]
     Active Substance: RALTEGRAVIR
  86. RALTEGRAVIR [Interacting]
     Active Substance: RALTEGRAVIR
  87. RALTEGRAVIR [Interacting]
     Active Substance: RALTEGRAVIR
  88. RALTEGRAVIR [Interacting]
     Active Substance: RALTEGRAVIR
     Dosage: 400 MILLIGRAM, QD
  89. RALTEGRAVIR [Interacting]
     Active Substance: RALTEGRAVIR
     Dosage: 800 MILLIGRAM, QD
  90. RALTEGRAVIR [Interacting]
     Active Substance: RALTEGRAVIR
     Dosage: 400 MILLIGRAM, BID (2 EVERY 1 DAYS)
  91. ATAZANAVIR [Interacting]
     Active Substance: ATAZANAVIR
     Indication: HIV infection
  92. ATAZANAVIR [Interacting]
     Active Substance: ATAZANAVIR
     Indication: Bipolar disorder
  93. ATAZANAVIR [Interacting]
     Active Substance: ATAZANAVIR
  94. ISENTRESS [Interacting]
     Active Substance: RALTEGRAVIR POTASSIUM
     Indication: HIV infection
     Dosage: 400 MILLIGRAM, BID
  95. ISENTRESS [Interacting]
     Active Substance: RALTEGRAVIR POTASSIUM
  96. ISENTRESS [Interacting]
     Active Substance: RALTEGRAVIR POTASSIUM
  97. ISENTRESS [Interacting]
     Active Substance: RALTEGRAVIR POTASSIUM
  98. ISENTRESS [Interacting]
     Active Substance: RALTEGRAVIR POTASSIUM
     Dosage: 1 DOSAGE FORM, BID
  99. ISENTRESS [Interacting]
     Active Substance: RALTEGRAVIR POTASSIUM
     Dosage: 2 DOSAGE FORM, QD
  100. ISENTRESS [Interacting]
     Active Substance: RALTEGRAVIR POTASSIUM
     Dosage: 800 MILLIGRAM, BID
  101. ISENTRESS [Interacting]
     Active Substance: RALTEGRAVIR POTASSIUM
     Dosage: 800 MILLIGRAM, QD
  102. SUSTIVA [Interacting]
     Active Substance: EFAVIRENZ
     Indication: Product used for unknown indication
     Dosage: 400 MILLIGRAM, BID (2 EVERY 1 DAY)
  103. SUSTIVA [Interacting]
     Active Substance: EFAVIRENZ
  104. SUSTIVA [Interacting]
     Active Substance: EFAVIRENZ
  105. SUSTIVA [Interacting]
     Active Substance: EFAVIRENZ
     Dosage: 400 MILLIGRAM, BID
  106. SUSTIVA [Interacting]
     Active Substance: EFAVIRENZ
     Dosage: 800 MILLIGRAM, QD
  107. KALETRA [Interacting]
     Active Substance: LOPINAVIR\RITONAVIR
     Indication: HIV infection
  108. KALETRA [Interacting]
     Active Substance: LOPINAVIR\RITONAVIR
     Indication: Bipolar disorder
     Dosage: 400 MILLIGRAM, BID
  109. KALETRA [Interacting]
     Active Substance: LOPINAVIR\RITONAVIR
  110. BUPROPION [Interacting]
     Active Substance: BUPROPION
     Indication: Bipolar disorder
  111. BUPROPION [Interacting]
     Active Substance: BUPROPION
  112. LAMIVUDINE [Interacting]
     Active Substance: LAMIVUDINE
     Indication: HIV infection
  113. LAMIVUDINE [Interacting]
     Active Substance: LAMIVUDINE
     Indication: Bipolar disorder
  114. RALTEGRAVIR POTASSIUM [Interacting]
     Active Substance: RALTEGRAVIR POTASSIUM
     Indication: Product used for unknown indication
     Dosage: 400 MILLIGRAM, BID (2 EVERY 1 DAY)
  115. RALTEGRAVIR POTASSIUM [Interacting]
     Active Substance: RALTEGRAVIR POTASSIUM
  116. RALTEGRAVIR POTASSIUM [Interacting]
     Active Substance: RALTEGRAVIR POTASSIUM
     Dosage: 400 MILLIGRAM, QD
  117. RALTEGRAVIR POTASSIUM [Interacting]
     Active Substance: RALTEGRAVIR POTASSIUM
     Dosage: 1 DOSAGE FORM, QD
  118. RALTEGRAVIR POTASSIUM [Interacting]
     Active Substance: RALTEGRAVIR POTASSIUM
     Dosage: 400 MILLILITER, QD (1 EVERY 1 DAYS)
  119. RALTEGRAVIR POTASSIUM [Interacting]
     Active Substance: RALTEGRAVIR POTASSIUM
     Dosage: 2 MILLIGRAM, QD (1 EVERY 1 DAYS)
  120. RALTEGRAVIR POTASSIUM [Interacting]
     Active Substance: RALTEGRAVIR POTASSIUM
  121. RALTEGRAVIR POTASSIUM [Interacting]
     Active Substance: RALTEGRAVIR POTASSIUM
     Dosage: 400 MILLIGRAM, BID (2 EVERY 1 DAY)
  122. RALTEGRAVIR POTASSIUM [Interacting]
     Active Substance: RALTEGRAVIR POTASSIUM
     Dosage: 1 DOSAGE FORM, BID (2 EVERY 1 DAYS)
  123. ATAZANAVIR SULFATE [Interacting]
     Active Substance: ATAZANAVIR SULFATE
     Indication: HIV infection
  124. ATAZANAVIR SULFATE [Interacting]
     Active Substance: ATAZANAVIR SULFATE
  125. ATAZANAVIR SULFATE [Interacting]
     Active Substance: ATAZANAVIR SULFATE
  126. ABACAVIR SULFATE\LAMIVUDINE\ZIDOVUDINE [Interacting]
     Active Substance: ABACAVIR SULFATE\LAMIVUDINE\ZIDOVUDINE
     Indication: HIV infection
  127. EFAVIRENZ [Interacting]
     Active Substance: EFAVIRENZ
     Indication: HIV infection
     Dosage: 400 MILLIGRAM, BID
  128. EFAVIRENZ [Interacting]
     Active Substance: EFAVIRENZ
     Dosage: 1 DOSAGE FORM, BID
  129. EFAVIRENZ [Interacting]
     Active Substance: EFAVIRENZ
     Dosage: 400 MILLIGRAM, QD
  130. EFAVIRENZ [Interacting]
     Active Substance: EFAVIRENZ
     Dosage: 800 MILLIGRAM, BID
  131. ATAZANAVIR SULFATE\COBICISTAT [Interacting]
     Active Substance: ATAZANAVIR SULFATE\COBICISTAT
     Indication: HIV infection
  132. RISPERIDONE [Interacting]
     Active Substance: RISPERIDONE
     Indication: Depression
  133. ENFUVIRTIDE [Interacting]
     Active Substance: ENFUVIRTIDE
     Indication: HIV infection
  134. CITALOPRAM HYDROBROMIDE [Interacting]
     Active Substance: CITALOPRAM HYDROBROMIDE
     Indication: Psychotic disorder
  135. BUPROPION HYDROBROMIDE [Interacting]
     Active Substance: BUPROPION HYDROBROMIDE
     Indication: Bipolar disorder
  136. BUPROPION HYDROBROMIDE [Interacting]
     Active Substance: BUPROPION HYDROBROMIDE
  137. VALPROATE SODIUM [Interacting]
     Active Substance: VALPROATE SODIUM
     Indication: Bipolar disorder
  138. SUSTIVA [Interacting]
     Active Substance: EFAVIRENZ
     Indication: HIV infection
     Dosage: 400 MILLIGRAM, QD
  139. SUSTIVA [Interacting]
     Active Substance: EFAVIRENZ
     Dosage: 800 MILLIGRAM, QD
  140. SUSTIVA [Interacting]
     Active Substance: EFAVIRENZ
  141. SUSTIVA [Interacting]
     Active Substance: EFAVIRENZ
     Dosage: 400 MILLIGRAM, BID (Q12H)
  142. EFAVIRENZ [Suspect]
     Active Substance: EFAVIRENZ
     Indication: HIV infection
  143. ATAZANAVIR SULFATE [Interacting]
     Active Substance: ATAZANAVIR SULFATE
     Indication: HIV infection
  144. ATAZANAVIR SULFATE [Interacting]
     Active Substance: ATAZANAVIR SULFATE
  145. ATAZANAVIR SULFATE [Interacting]
     Active Substance: ATAZANAVIR SULFATE
  146. BUPROPION HYDROBROMIDE [Interacting]
     Active Substance: BUPROPION HYDROBROMIDE
     Indication: Bipolar disorder
  147. LOPINAVIR\RITONAVIR [Suspect]
     Active Substance: LOPINAVIR\RITONAVIR
     Indication: Product used for unknown indication
  148. ZOPICLONE [Suspect]
     Active Substance: ZOPICLONE
     Indication: Bipolar disorder
  149. ENFUVIRTIDE [Concomitant]
     Active Substance: ENFUVIRTIDE
     Indication: HIV infection
  150. ENFUVIRTIDE [Concomitant]
     Active Substance: ENFUVIRTIDE
     Dosage: UNK, BID
  151. CLONAZEPAM [Concomitant]
     Active Substance: CLONAZEPAM
  152. LAMIVUDINE [Interacting]
     Active Substance: LAMIVUDINE
     Indication: HIV infection
  153. QUETIAPINE FUMARATE [Suspect]
     Active Substance: QUETIAPINE FUMARATE
     Indication: Bipolar disorder
     Dosage: 2 DOSAGE FORM, QD (1 EVERY 1 DAYS)
  154. QUETIAPINE FUMARATE [Suspect]
     Active Substance: QUETIAPINE FUMARATE
     Dosage: 400 MILLIGRAM, Q2W (1 EVERY 2 WEEKS)
  155. QUETIAPINE FUMARATE [Suspect]
     Active Substance: QUETIAPINE FUMARATE
  156. QUETIAPINE FUMARATE [Suspect]
     Active Substance: QUETIAPINE FUMARATE
  157. QUETIAPINE FUMARATE [Suspect]
     Active Substance: QUETIAPINE FUMARATE
     Dosage: 400 MILLIGRAM, QID (4 EVERY 1 DAYS)
  158. EFAVIRENZ [Suspect]
     Active Substance: EFAVIRENZ
     Indication: HIV infection
     Dosage: 400 MILLIGRAM, QD (1 EVERY 1 DAYS)
  159. EFAVIRENZ [Suspect]
     Active Substance: EFAVIRENZ
     Dosage: 400 MILLIGRAM, BID (2 EVERY 1 DAYS)
  160. EFAVIRENZ [Suspect]
     Active Substance: EFAVIRENZ
  161. EFAVIRENZ [Suspect]
     Active Substance: EFAVIRENZ
  162. EFAVIRENZ [Suspect]
     Active Substance: EFAVIRENZ
     Dosage: 1 DOSAGE FORM, BID (2 EVERY 1 DAYS)
  163. EFAVIRENZ [Suspect]
     Active Substance: EFAVIRENZ
     Dosage: 800 MILLIGRAM, QD (1 EVERY 1 DAYS)
  164. EFAVIRENZ [Suspect]
     Active Substance: EFAVIRENZ
  165. KALETRA [Interacting]
     Active Substance: LOPINAVIR\RITONAVIR
     Indication: HIV infection
  166. KALETRA [Interacting]
     Active Substance: LOPINAVIR\RITONAVIR
  167. KALETRA [Concomitant]
     Active Substance: LOPINAVIR\RITONAVIR
  168. ENFUVIRTIDE [Concomitant]
     Active Substance: ENFUVIRTIDE
  169. TENOFOVIR DISOPROXIL FUMARATE [Concomitant]
     Active Substance: TENOFOVIR DISOPROXIL FUMARATE
  170. EMTRICITABINE [Concomitant]
     Active Substance: EMTRICITABINE
  171. ATAZANAVIR SULFATE [Concomitant]
     Active Substance: ATAZANAVIR SULFATE
  172. ENFUVIRTIDE [Concomitant]
     Active Substance: ENFUVIRTIDE
     Indication: HIV infection
  173. ENFUVIRTIDE [Concomitant]
     Active Substance: ENFUVIRTIDE

REACTIONS (17)
  - Depression [Fatal]
  - Drug interaction [Fatal]
  - Loss of personal independence in daily activities [Fatal]
  - Intentional product use issue [Fatal]
  - Incorrect route of product administration [Fatal]
  - Prescribed overdose [Fatal]
  - Product use in unapproved indication [Fatal]
  - Anxiety [Unknown]
  - Tearfulness [Unknown]
  - Suicidal ideation [Unknown]
  - Psychotic disorder [Unknown]
  - Psychomotor skills impaired [Unknown]
  - Lymphoproliferative disorder [Unknown]
  - Psychiatric decompensation [Unknown]
  - Paranoia [Unknown]
  - Depressive symptom [Unknown]
  - Depression suicidal [Unknown]
